FAERS Safety Report 21058982 (Version 1)
Quarter: 2022Q3

REPORT INFORMATION
  Report Type: Spontaneous
  Country: US (occurrence: None)
  Receive Date: 20220708
  Receipt Date: 20220708
  Transmission Date: 20221027
  Serious: No
  Sender: FDA-Public Use
  Company Number: None

PATIENT
  Age: 48 Year
  Sex: Female
  Weight: 112.5 kg

DRUGS (13)
  1. AJOVY [Suspect]
     Active Substance: FREMANEZUMAB-VFRM
     Indication: Migraine prophylaxis
     Dosage: FREQUENCY : MONTHLY;?
     Route: 058
     Dates: start: 20220410, end: 20220605
  2. NARATRIPTAN [Concomitant]
     Active Substance: NARATRIPTAN HYDROCHLORIDE
  3. SUMATRIPTAN [Concomitant]
     Active Substance: SUMATRIPTAN
  4. METOCLOPRAMIDE [Concomitant]
     Active Substance: METOCLOPRAMIDE
  5. IBUPROFEN [Concomitant]
     Active Substance: IBUPROFEN
  6. VITAMINS [Concomitant]
     Active Substance: VITAMINS
  7. CALCIUM [Concomitant]
     Active Substance: CALCIUM
  8. MAGNESIUM [Concomitant]
     Active Substance: MAGNESIUM
  9. VITAMIN D NOS [Concomitant]
     Active Substance: VITAMIN D NOS
  10. VITAMIN B [Concomitant]
     Active Substance: VITAMIN B
  11. IRON [Concomitant]
     Active Substance: IRON
  12. ZINC [Concomitant]
     Active Substance: ZINC
  13. HERBALS\TURMERIC [Concomitant]
     Active Substance: HERBALS\TURMERIC

REACTIONS (5)
  - Alopecia [None]
  - Immunosuppression [None]
  - Viral infection [None]
  - Fatigue [None]
  - Malaise [None]

NARRATIVE: CASE EVENT DATE: 20220705
